FAERS Safety Report 5038750-9 (Version None)
Quarter: 2006Q2

REPORT INFORMATION
  Report Type: 
  Country: None (occurrence: None)
  Receive Date: 20060629
  Receipt Date: 20060619
  Transmission Date: 20061013
  Serious: Yes (Other)
  Sender: FDA-Public Use
  Company Number: PHEH2006US07969

PATIENT
  Age: 57 Year
  Sex: Female

DRUGS (5)
  1. LAMISIL [Suspect]
     Indication: NAIL TINEA
     Dosage: 250 MG, QD
     Route: 048
     Dates: start: 20060411, end: 20060608
  2. PREDNISONE TAB [Concomitant]
  3. DICLOFENAC [Concomitant]
  4. RESTASIS [Concomitant]
  5. RHINOCORT [Concomitant]

REACTIONS (4)
  - AGEUSIA [None]
  - ANOSMIA [None]
  - NAUSEA [None]
  - WEIGHT DECREASED [None]
